FAERS Safety Report 8913731 (Version 1)
Quarter: 2012Q4

REPORT INFORMATION
  Report Type: 
  Country: FR (occurrence: FR)
  Receive Date: 20121119
  Receipt Date: 20121119
  Transmission Date: 20130627
  Serious: Yes (Death)
  Sender: FDA-Public Use
  Company Number: FR-JNJFOC-20121103758

PATIENT
  Sex: Male
  Weight: 35 kg

DRUGS (2)
  1. DUROGESIC [Suspect]
     Indication: NEOPLASM MALIGNANT
     Route: 062
  2. AN UNKNOWN MEDICATION [Concomitant]
     Route: 065

REACTIONS (2)
  - Disease progression [Fatal]
  - Application site erythema [Unknown]
